FAERS Safety Report 9461561 (Version 1)
Quarter: 2013Q3

REPORT INFORMATION
  Report Type: Other
  Country: AU (occurrence: AU)
  Receive Date: 20130816
  Receipt Date: 20130816
  Transmission Date: 20140515
  Serious: Yes (Death, Other)
  Sender: FDA-Public Use
  Company Number: AU-BRISTOL-MYERS SQUIBB COMPANY-19192947

PATIENT
  Age: 43 Year
  Sex: Male

DRUGS (2)
  1. CETUXIMAB [Suspect]
     Indication: SQUAMOUS CELL CARCINOMA OF SKIN
     Dosage: 7CYCLE
     Route: 048
  2. METHOTREXATE [Suspect]
     Dosage: IV
     Route: 048

REACTIONS (5)
  - Pneumonia [Fatal]
  - Metastases to lung [Unknown]
  - Malignant neoplasm progression [Unknown]
  - Rash vesicular [Unknown]
  - Off label use [Unknown]
